FAERS Safety Report 18453621 (Version 5)
Quarter: 2021Q3

REPORT INFORMATION
  Report Type: Report from Study
  Country: US (occurrence: US)
  Receive Date: 20201102
  Receipt Date: 20210906
  Transmission Date: 20211014
  Serious: Yes (Other)
  Sender: FDA-Public Use
  Company Number: NVSC2020US293838

PATIENT
  Age: 60 Year
  Sex: Female

DRUGS (3)
  1. COSENTYX [Suspect]
     Active Substance: SECUKINUMAB
     Indication: ANKYLOSING SPONDYLITIS
     Dosage: 150 MG, Q4W
     Route: 058
     Dates: start: 20201021
  2. COSENTYX [Suspect]
     Active Substance: SECUKINUMAB
     Dosage: 150 MG, Q4W(ONCE A WEEK FOR 5 WEEKS AND THEN Q 4)
     Route: 058
  3. COSENTYX [Suspect]
     Active Substance: SECUKINUMAB
     Indication: PALPITATIONS
     Dosage: 150 MG, QW
     Route: 058
     Dates: start: 20201029

REACTIONS (7)
  - Nasal congestion [Unknown]
  - Nasal discomfort [Unknown]
  - Product use in unapproved indication [Unknown]
  - Palpitations [Unknown]
  - Nasal dryness [Unknown]
  - Cardiac flutter [Unknown]
  - Angina pectoris [Unknown]

NARRATIVE: CASE EVENT DATE: 20201029
